FAERS Safety Report 5817918-5 (Version None)
Quarter: 2008Q3

REPORT INFORMATION
  Report Type: 
  Country: None (occurrence: None)
  Receive Date: 20080722
  Receipt Date: 20071119
  Transmission Date: 20090109
  Serious: Yes (Other)
  Sender: FDA-Public Use
  Company Number: US-BAYER-US-2007-025621

PATIENT
  Age: 72 Year
  Sex: Female
  Weight: 82 kg

DRUGS (14)
  1. MAGNEVIST [Suspect]
     Indication: NUCLEAR MAGNETIC RESONANCE IMAGING
     Dates: start: 20051017, end: 20051017
  2. MAGNEVIST [Suspect]
     Dates: start: 20060131, end: 20060131
  3. MAGNEVIST [Suspect]
     Dates: start: 20060503, end: 20060503
  4. MAGNEVIST [Suspect]
     Dates: start: 20060606, end: 20060606
  5. MAGNEVIST [Suspect]
     Dates: start: 20061218, end: 20061218
  6. COUMADIN [Concomitant]
     Indication: HYPERCOAGULATION
     Dosage: UNIT DOSE: 2 MG
  7. NEURONTIN [Concomitant]
  8. LIPITOR [Concomitant]
  9. AMBIEN [Concomitant]
  10. ATENOLOL [Concomitant]
  11. PAXIL [Concomitant]
  12. NORVASC [Concomitant]
  13. COZAAR [Concomitant]
  14. SYNTHROID [Concomitant]

REACTIONS (1)
  - NEPHROGENIC SYSTEMIC FIBROSIS [None]
